FAERS Safety Report 21508864 (Version 1)
Quarter: 2022Q4

REPORT INFORMATION
  Report Type: Spontaneous
  Country: US (occurrence: US)
  Receive Date: 20221026
  Receipt Date: 20221026
  Transmission Date: 20230112
  Serious: Yes (Hospitalization, Other)
  Sender: FDA-Public Use
  Company Number: US-ViiV Healthcare Limited-86839

PATIENT
  Age: 35 Year
  Sex: Male

DRUGS (2)
  1. RILPIVIRINE [Suspect]
     Active Substance: RILPIVIRINE
     Indication: Product used for unknown indication
     Dosage: UNK MONTHLY
     Route: 030
     Dates: end: 20220905
  2. CABOTEGRAVIR [Suspect]
     Active Substance: CABOTEGRAVIR
     Indication: Product used for unknown indication
     Dosage: UNK MONTHLY
     Route: 030
     Dates: end: 20220905

REACTIONS (5)
  - Gastrointestinal haemorrhage [Unknown]
  - Contrast media allergy [Unknown]
  - Peptic ulcer [Unknown]
  - Delirium [Unknown]
  - Endotracheal intubation [Unknown]

NARRATIVE: CASE EVENT DATE: 20220101
